FAERS Safety Report 7931161-5 (Version None)
Quarter: 2011Q4

REPORT INFORMATION
  Report Type: 
  Country: None (occurrence: None)
  Receive Date: 20111121
  Receipt Date: 20111114
  Transmission Date: 20120403
  Serious: Yes (Hospitalization)
  Sender: FDA-Public Use
  Company Number: JP-MERCK-1111USA00687

PATIENT
  Age: 70 Year
  Sex: Male

DRUGS (8)
  1. SINEMET [Suspect]
     Indication: PARKINSON'S DISEASE
     Dosage: DIVIDED DOSE FREQUENCY UNKNOWN
     Route: 048
     Dates: start: 20110101
  2. DIOVAN [Concomitant]
     Route: 048
  3. GRAMALIL [Concomitant]
     Route: 048
  4. CABERGOLINE [Concomitant]
     Route: 048
  5. MAGMITT [Concomitant]
     Route: 048
  6. LASIX [Concomitant]
     Route: 065
  7. MUCOSTA [Concomitant]
     Route: 048
  8. LAC-B [Concomitant]
     Route: 048

REACTIONS (2)
  - TONGUE DISCOLOURATION [None]
  - FEMUR FRACTURE [None]
